FAERS Safety Report 17844946 (Version 2)
Quarter: 2020Q3

REPORT INFORMATION
  Report Type: Spontaneous
  Country: US (occurrence: US)
  Receive Date: 20200601
  Receipt Date: 20200731
  Transmission Date: 20201103
  Serious: No
  Sender: FDA-Public Use
  Company Number: US-LUPIN PHARMACEUTICALS INC.-2020-02450

PATIENT
  Age: 65 Year
  Sex: Female

DRUGS (4)
  1. ISOTRETINOIN. [Suspect]
     Active Substance: ISOTRETINOIN
     Indication: PAPULE
  2. CLOBETASOL [Suspect]
     Active Substance: CLOBETASOL
     Indication: LICHEN PLANOPILARIS
     Dosage: UNK
     Route: 061
  3. TRIAMCINOLONE ACETONIDE. [Suspect]
     Active Substance: TRIAMCINOLONE ACETONIDE
     Indication: LICHEN PLANOPILARIS
     Dosage: 5 MILLIGRAM PER MILLILITRE, EVERY 6 TO 8 WEEKS
     Route: 026
  4. ISOTRETINOIN. [Suspect]
     Active Substance: ISOTRETINOIN
     Indication: LICHEN PLANOPILARIS
     Dosage: 20 MILLIGRAM, QD
     Route: 048

REACTIONS (1)
  - Lip dry [Unknown]
